FAERS Safety Report 8210126-2 (Version None)
Quarter: 2012Q1

REPORT INFORMATION
  Report Type: 
  Country: None (occurrence: None)
  Receive Date: 20120314
  Receipt Date: 20110808
  Transmission Date: 20120608
  Serious: Yes (Other)
  Sender: FDA-Public Use
  Company Number: US-ASTRAZENECA-2011SE47285

PATIENT
  Age: 88 Year
  Sex: Female

DRUGS (4)
  1. TOPROL-XL [Suspect]
     Dosage: DAILY
     Route: 048
     Dates: end: 20070101
  2. LEVOTHYROXINE SODIUM [Concomitant]
     Indication: THYROID DISORDER
     Route: 048
  3. CRESTOR [Suspect]
     Indication: HYPERCHOLESTEROLAEMIA
     Route: 048
     Dates: start: 20110511, end: 20110601
  4. A-FIB MEDICATION [Concomitant]
     Route: 048

REACTIONS (4)
  - MUSCLE DISORDER [None]
  - MYALGIA [None]
  - MUSCLE TIGHTNESS [None]
  - BRONCHOSPASM [None]
